FAERS Safety Report 14280767 (Version 1)
Quarter: 2017Q4

REPORT INFORMATION
  Report Type: Report from Study
  Country: US (occurrence: US)
  Receive Date: 20171213
  Receipt Date: 20171213
  Transmission Date: 20180321
  Serious: Yes (Other)
  Sender: FDA-Public Use
  Company Number: US-ROCHE-2034783

PATIENT
  Age: 66 Year
  Sex: Female
  Weight: 59.3 kg

DRUGS (12)
  1. CELLCEPT [Suspect]
     Active Substance: MYCOPHENOLATE MOFETIL\MYCOPHENOLATE MOFETIL HYDROCHLORIDE
     Indication: DERMATOMYOSITIS
     Route: 048
     Dates: start: 201702
  2. CELLCEPT [Suspect]
     Active Substance: MYCOPHENOLATE MOFETIL\MYCOPHENOLATE MOFETIL HYDROCHLORIDE
     Dosage: TAKE 2 TABS BY MOUTH 2 TIMES DAILY
     Route: 048
     Dates: start: 201707
  3. PNEUMOVAX 23 [Concomitant]
     Active Substance: PNEUMOCOCCAL VACCINE, POLYVALENT 23
     Route: 065
     Dates: start: 20121119
  4. CELLCEPT [Suspect]
     Active Substance: MYCOPHENOLATE MOFETIL\MYCOPHENOLATE MOFETIL HYDROCHLORIDE
     Route: 048
  5. ATIVAN [Concomitant]
     Active Substance: LORAZEPAM
     Route: 048
  6. ALENDRONATE [Concomitant]
     Active Substance: ALENDRONATE SODIUM
     Route: 065
     Dates: start: 20170612
  7. CELLCEPT [Suspect]
     Active Substance: MYCOPHENOLATE MOFETIL\MYCOPHENOLATE MOFETIL HYDROCHLORIDE
     Indication: ARTHRITIS
     Route: 048
     Dates: start: 201706
  8. CELLCEPT [Suspect]
     Active Substance: MYCOPHENOLATE MOFETIL\MYCOPHENOLATE MOFETIL HYDROCHLORIDE
     Dosage: SUBSEQUENT DOSE RECEIVED IN DEC/2015, //2017
     Route: 048
  9. ALENDRONATE [Concomitant]
     Active Substance: ALENDRONATE SODIUM
     Route: 065
     Dates: end: 2015
  10. SYNTHROID [Concomitant]
     Active Substance: LEVOTHYROXINE SODIUM
     Route: 048
  11. PREDNISOLONE. [Concomitant]
     Active Substance: PREDNISOLONE
  12. PREVNAR [Concomitant]
     Active Substance: PNEUMOCOCCAL 7-VALENT CONJUGATE VACCINE (DIPHTHERIA CRM197 PROTEIN)
     Route: 065
     Dates: start: 20150130

REACTIONS (14)
  - Rash [Not Recovered/Not Resolved]
  - Gingival bleeding [Recovering/Resolving]
  - Raynaud^s phenomenon [Unknown]
  - Musculoskeletal stiffness [Unknown]
  - Off label use [Unknown]
  - Blood pressure increased [Unknown]
  - Capillary disorder [Unknown]
  - Intentional product use issue [Unknown]
  - Butterfly rash [Unknown]
  - Arthralgia [Unknown]
  - Swollen tongue [Unknown]
  - Erythema [Unknown]
  - Fatigue [Unknown]
  - Poikiloderma [Unknown]

NARRATIVE: CASE EVENT DATE: 201710
